FAERS Safety Report 9275823 (Version 3)
Quarter: 2013Q3

REPORT INFORMATION
  Report Type: Spontaneous
  Country: US (occurrence: US)
  Receive Date: 20130507
  Receipt Date: 20130910
  Transmission Date: 20140515
  Serious: No
  Sender: FDA-Public Use
  Company Number: US-PFIZER INC-2013137838

PATIENT
  Age: 57 Year
  Sex: Female

DRUGS (1)
  1. CLINDAMYCIN PHOSPHATE [Suspect]
     Indication: SKIN DISORDER
     Dosage: UNK, 1X/DAY
     Route: 061
     Dates: start: 20130419, end: 20130430

REACTIONS (2)
  - Drug ineffective [Unknown]
  - Product odour abnormal [Unknown]
